FAERS Safety Report 8320758-9 (Version None)
Quarter: 2012Q2

REPORT INFORMATION
  Report Type: 
  Country: None (occurrence: None)
  Receive Date: 20120430
  Receipt Date: 20120423
  Transmission Date: 20120825
  Serious: Yes (Death)
  Sender: FDA-Public Use
  Company Number: PHHY2012US035365

PATIENT
  Age: 16 Year
  Sex: Female

DRUGS (12)
  1. OXYCODONE HYDROCHLORIDE [Suspect]
     Dosage: 0.22 UG/ML, UNK
  2. ACETAMINOPHEN AND CODEINE PHOSPHATE [Suspect]
     Indication: ANALGESIC THERAPY
     Dosage: 110 UG/ML, UNK
  3. HYDROCODONE [Suspect]
     Dosage: 0.8 UG/ML, UNK
  4. NORTRIPTYLINE HCL [Suspect]
  5. CODEINE PHOSPHATE [Suspect]
     Dosage: 3.3 UG/ML, UNK
  6. MORPHINE [Suspect]
     Dosage: 2.5 UG/ML, UNK
  7. METOPROLOL TARTRATE [Suspect]
  8. OXYCODONE HYDROCHLORIDE [Suspect]
     Dosage: 0.4 UG/ML, UNK
  9. AMITRIPTYLINE HCL [Suspect]
     Dosage: 6000 OT, UNK
  10. MORPHINE [Suspect]
     Dosage: 0.13 UG/ML, UNK
  11. ACETAMINOPHEN AND CODEINE PHOSPHATE [Suspect]
     Dosage: 122 UG/ML, UNK
  12. OXYMORPHONE [Suspect]
     Dosage: 0.37 UG/ML, UNK

REACTIONS (1)
  - COMPLETED SUICIDE [None]
